FAERS Safety Report 8476773-8 (Version None)
Quarter: 2012Q2

REPORT INFORMATION
  Report Type: 
  Country: None (occurrence: None)
  Receive Date: 20120628
  Receipt Date: 20120622
  Transmission Date: 20120825
  Serious: Yes (Other)
  Sender: FDA-Public Use
  Company Number: JP-MERCK-1206USA04672

PATIENT
  Age: 74 Year
  Sex: Female

DRUGS (1)
  1. ZETIA [Suspect]
     Route: 048
     Dates: start: 20101201, end: 20110101

REACTIONS (2)
  - LEUKOPENIA [None]
  - THROMBOCYTOPENIA [None]
